FAERS Safety Report 7308334-8 (Version None)
Quarter: 2011Q1

REPORT INFORMATION
  Report Type: 
  Country: None (occurrence: None)
  Receive Date: 20110223
  Receipt Date: 20110217
  Transmission Date: 20110831
  Serious: Yes (Other)
  Sender: FDA-Public Use
  Company Number: B0694379A

PATIENT
  Sex: Male

DRUGS (1)
  1. FLIXONASE [Suspect]
     Dosage: 200MCG PER DAY
     Route: 045
     Dates: start: 20100911, end: 20100918

REACTIONS (4)
  - RHINITIS ALLERGIC [None]
  - EPISTAXIS [None]
  - NASAL DRYNESS [None]
  - NASAL MUCOSA ATROPHY [None]
